FAERS Safety Report 12367365 (Version 1)
Quarter: 2016Q2

REPORT INFORMATION
  Report Type: Spontaneous
  Country: US (occurrence: US)
  Receive Date: 20160513
  Receipt Date: 20160513
  Transmission Date: 20160815
  Serious: No
  Sender: FDA-Public Use
  Company Number: US-MDT-ADR-2016-00388

PATIENT
  Age: 49 Year
  Sex: Female

DRUGS (1)
  1. BACLOFEN. [Suspect]
     Active Substance: BACLOFEN
     Route: 037

REACTIONS (4)
  - Pruritus [Unknown]
  - Hypoaesthesia [Unknown]
  - Somnolence [Unknown]
  - Muscle spasms [Unknown]

NARRATIVE: CASE EVENT DATE: 20160222
